FAERS Safety Report 5154616-8 (Version None)
Quarter: 2006Q4

REPORT INFORMATION
  Report Type: 
  Country: None (occurrence: None)
  Receive Date: 20061113
  Receipt Date: 20061031
  Transmission Date: 20070319
  Serious: Yes (Other)
  Sender: FDA-Public Use
  Company Number: 06-001276

PATIENT
  Age: 71 Year
  Sex: Female

DRUGS (1)
  1. DORYX [Suspect]
     Dosage: QD, ORAL
     Route: 048

REACTIONS (1)
  - CHOLESTASIS [None]
